FAERS Safety Report 8510443-2 (Version None)
Quarter: 2012Q3

REPORT INFORMATION
  Report Type: 
  Country: None (occurrence: None)
  Receive Date: 20120715
  Receipt Date: 20120702
  Transmission Date: 20120928
  Serious: Yes (Other)
  Sender: FDA-Public Use
  Company Number: IE-TEVA-346423ISR

PATIENT
  Age: 48 Year
  Sex: Male

DRUGS (4)
  1. BLEOMYCIN SULFATE [Suspect]
     Indication: HODGKIN'S DISEASE
     Route: 065
  2. DACARBAZINE [Suspect]
     Indication: HODGKIN'S DISEASE
     Route: 065
  3. VINBLASTINE SULFATE [Suspect]
     Indication: HODGKIN'S DISEASE
     Route: 065
  4. DOXORUBICIN HCL [Suspect]
     Indication: HODGKIN'S DISEASE
     Route: 065

REACTIONS (4)
  - NEUTROPENIA [None]
  - ONYCHOMYCOSIS [None]
  - PERICARDIAL EFFUSION [None]
  - APHTHOUS STOMATITIS [None]
